FAERS Safety Report 6964890-0 (Version None)
Quarter: 2010Q3

REPORT INFORMATION
  Report Type: 
  Country: None (occurrence: None)
  Receive Date: 20100903
  Receipt Date: 20100825
  Transmission Date: 20110219
  Serious: Yes (Other)
  Sender: FDA-Public Use
  Company Number: US-ELI_LILLY_AND_COMPANY-US201008008633

PATIENT
  Sex: Female

DRUGS (2)
  1. HUMULIN 70/30 [Suspect]
     Indication: DIABETES MELLITUS
     Dosage: 38 U, EACH MORNING
  2. HUMULIN 70/30 [Suspect]
     Dosage: 30 U, EACH EVENING

REACTIONS (3)
  - INTRAOCULAR LENS IMPLANT [None]
  - MULTIPLE SCLEROSIS [None]
  - VISION BLURRED [None]
